FAERS Safety Report 7617550-7 (Version None)
Quarter: 2011Q3

REPORT INFORMATION
  Report Type: 
  Country: None (occurrence: None)
  Receive Date: 20110718
  Receipt Date: 20110705
  Transmission Date: 20111222
  Serious: Yes (Hospitalization)
  Sender: FDA-Public Use
  Company Number: FR-JNJFOC-20110510480

PATIENT
  Age: 52 Year
  Sex: Female
  Weight: 47 kg

DRUGS (6)
  1. NEXIUM [Concomitant]
  2. REMICADE [Suspect]
     Indication: COLITIS ULCERATIVE
     Dosage: 11TH INFUSION
     Route: 042
  3. REMICADE [Suspect]
     Route: 042
     Dates: start: 20100303
  4. HYDROCORTISONE [Concomitant]
     Route: 048
     Dates: start: 20100303
  5. TRAMADOL HCL [Concomitant]
     Route: 048
  6. PENTASA [Concomitant]
     Indication: COLITIS ULCERATIVE

REACTIONS (5)
  - CYTOMEGALOVIRUS INFECTION [None]
  - WEIGHT DECREASED [None]
  - CLOSTRIDIAL INFECTION [None]
  - ANAEMIA [None]
  - COLITIS ULCERATIVE [None]
